FAERS Safety Report 16255062 (Version 1)
Quarter: 2019Q2

REPORT INFORMATION
  Report Type: Spontaneous
  Country: US (occurrence: US)
  Receive Date: 20190429
  Receipt Date: 20190429
  Transmission Date: 20190711
  Serious: Yes (Other)
  Sender: FDA-Public Use
  Company Number: None

PATIENT
  Sex: Female
  Weight: 137.7 kg

DRUGS (9)
  1. AMITRIPTYLINE [Concomitant]
     Active Substance: AMITRIPTYLINE
  2. LEVOTHYROXINE. [Concomitant]
     Active Substance: LEVOTHYROXINE
  3. FISH OIL [Concomitant]
     Active Substance: FISH OIL
  4. VITAMIN C [Concomitant]
     Active Substance: ASCORBIC ACID
  5. GLUCOSAMINE [Concomitant]
     Active Substance: GLUCOSAMINE
  6. CAPECITABINE. [Suspect]
     Active Substance: CAPECITABINE
     Indication: BONE CANCER
     Dosage: ?          OTHER FREQUENCY:4TAB AM 3 TAB PM;?
     Route: 048
     Dates: start: 20181008, end: 20190429
  7. ZOMETA [Concomitant]
     Active Substance: ZOLEDRONIC ACID
  8. ADVIL [Concomitant]
     Active Substance: IBUPROFEN
  9. VITAMIN B12 [Concomitant]
     Active Substance: CYANOCOBALAMIN

REACTIONS (1)
  - Disease progression [None]
